FAERS Safety Report 25462731 (Version 2)
Quarter: 2025Q3

REPORT INFORMATION
  Report Type: Spontaneous
  Country: US (occurrence: US)
  Receive Date: 20250620
  Receipt Date: 20250717
  Transmission Date: 20251021
  Serious: No
  Sender: PFIZER
  Company Number: US-PFIZER INC-202500125239

PATIENT
  Age: 77 Year
  Sex: Female

DRUGS (12)
  1. IBRANCE [Suspect]
     Active Substance: PALBOCICLIB
     Route: 048
     Dates: start: 20250620
  2. BUDESONIDE [Concomitant]
     Active Substance: BUDESONIDE
  3. ESCITALOPRAM [Concomitant]
     Active Substance: ESCITALOPRAM OXALATE
  4. FAMOTIDINE [Concomitant]
     Active Substance: FAMOTIDINE
  5. HYDROCODONE [Concomitant]
     Active Substance: HYDROCODONE
  6. IPRATROPIUM [Concomitant]
     Active Substance: IPRATROPIUM
  7. LETROZOLE [Concomitant]
     Active Substance: LETROZOLE
  8. LISINOPRIL [Concomitant]
     Active Substance: LISINOPRIL
  9. MONTELUKAST [Concomitant]
     Active Substance: MONTELUKAST
  10. OMEPRAZOLE [Concomitant]
     Active Substance: OMEPRAZOLE
  11. SIMVASTATIN [Concomitant]
     Active Substance: SIMVASTATIN
  12. TIMOLOL MALEATE [Concomitant]
     Active Substance: TIMOLOL MALEATE

REACTIONS (1)
  - White blood cell count decreased [Not Recovered/Not Resolved]
